FAERS Safety Report 16360083 (Version 3)
Quarter: 2019Q2

REPORT INFORMATION
  Report Type: Report from Study
  Country: None (occurrence: GB)
  Receive Date: 20190528
  Receipt Date: 20190619
  Transmission Date: 20190711
  Serious: Yes (Other)
  Sender: FDA-Public Use
  Company Number: GB-ABBVIE-19S-167-2798854-00

PATIENT
  Sex: Female

DRUGS (1)
  1. DUODOPA [Suspect]
     Active Substance: CARBIDOPA\LEVODOPA
     Indication: PARKINSON^S DISEASE
     Dosage: 100ML CASSETTE 1 CASSETTE DAILY 100ML PACK 1 CASSETTE,?5MG/1ML 20MG/1ML CR 2.2ML
     Route: 050
     Dates: end: 2019

REACTIONS (8)
  - Intra-abdominal haemorrhage [Unknown]
  - Device connection issue [Unknown]
  - Secretion discharge [Unknown]
  - Infection [Unknown]
  - Stoma site infection [Recovering/Resolving]
  - Device dislocation [Unknown]
  - Gastrointestinal haemorrhage [Recovered/Resolved]
  - Stoma site haemorrhage [Recovering/Resolving]
